FAERS Safety Report 8493612 (Version 6)
Quarter: 2014Q1

REPORT INFORMATION
  Report Type: Spontaneous
  Country: US (occurrence: US)
  Receive Date: 20120404
  Receipt Date: 20140224
  Transmission Date: 20141002
  Serious: Yes (Other)
  Sender: FDA-Public Use
  Company Number: US-PFIZER INC-2012081803

PATIENT
  Age: 71 Year
  Sex: Female
  Weight: 61.22 kg

DRUGS (18)
  1. LYRICA [Suspect]
     Indication: NEUROPATHY PERIPHERAL
     Dosage: 50 MG, DAILY
     Route: 048
     Dates: start: 20111101
  2. LYRICA [Interacting]
     Indication: BURNING SENSATION
     Dosage: 75 MG, DAILY
     Route: 048
  3. LYRICA [Interacting]
     Dosage: 100 MG, DAILY
     Route: 048
     Dates: start: 201111
  4. LYRICA [Interacting]
     Dosage: 50 MG, 2X/DAY
     Route: 048
  5. LYRICA [Interacting]
     Dosage: 50 MG, 2X/DAY
     Route: 048
     Dates: start: 201111
  6. LYRICA [Interacting]
     Dosage: 25 MG, 2X/DAY
     Route: 048
  7. LYRICA [Interacting]
     Dosage: UNK
     Route: 048
  8. LYRICA [Interacting]
     Dosage: 100 MG, UNK
     Dates: start: 201111
  9. LYRICA [Interacting]
     Dosage: 50 MG, DAILY
  10. IBUPROFEN [Interacting]
     Indication: ARTHROPATHY
     Dosage: UNK
  11. GABAPENTIN [Interacting]
     Indication: NEUROPATHY PERIPHERAL
     Dosage: 100 MG, DAILY
     Dates: start: 20130802, end: 20130817
  12. GABAPENTIN [Interacting]
     Dosage: UNK
     Route: 048
  13. TYLENOL [Interacting]
     Indication: PAIN
     Dosage: UNK
  14. CYMBALTA [Suspect]
     Dosage: UNK
  15. SYNTHROID [Suspect]
     Indication: HYPOTHYROIDISM
     Dosage: UNK
  16. AMITRIPTYLINE [Suspect]
     Dosage: UNK
  17. SYNTHROID [Concomitant]
     Indication: THYROID DISORDER
     Dosage: ONE DAY 88MG, ANOTHER DAY 100MG
  18. SYNTHROID [Concomitant]
     Indication: THYROID DISORDER
     Dosage: 88 UG, 1X/DAY

REACTIONS (24)
  - Arthropathy [Unknown]
  - Musculoskeletal stiffness [Recovering/Resolving]
  - Insomnia [Not Recovered/Not Resolved]
  - Dyspnoea [Unknown]
  - Fatigue [Not Recovered/Not Resolved]
  - Paraesthesia [Unknown]
  - Pain [Unknown]
  - Weight increased [Unknown]
  - Drug interaction [Unknown]
  - Asthenia [Unknown]
  - Malaise [Unknown]
  - Disturbance in attention [Unknown]
  - Feeling abnormal [Unknown]
  - Nervous system disorder [Not Recovered/Not Resolved]
  - Gait disturbance [Not Recovered/Not Resolved]
  - Drug intolerance [Unknown]
  - Therapeutic response unexpected [Unknown]
  - Headache [Unknown]
  - Sleep apnoea syndrome [Unknown]
  - Weight decreased [Unknown]
  - Pain in extremity [Not Recovered/Not Resolved]
  - Pain in extremity [Unknown]
  - Nausea [Unknown]
  - Drug ineffective [Unknown]
